FAERS Safety Report 25951475 (Version 1)
Quarter: 2025Q4

REPORT INFORMATION
  Report Type: Spontaneous
  Country: CN (occurrence: CN)
  Receive Date: 20251023
  Receipt Date: 20251023
  Transmission Date: 20260118
  Serious: Yes (Life-Threatening, Hospitalization, Other)
  Sender: Steriscience PTE
  Company Number: None

PATIENT
  Age: 2 Month
  Sex: Female
  Weight: 6.25 kg

DRUGS (2)
  1. MEROPENEM [Suspect]
     Active Substance: MEROPENEM
     Indication: Enterobacter infection
     Dosage: 20 MILLIGRAM/KILOGRAM, Q8H, MEROPENEM AT AN INCREASED DOSE (120 MG/KG PER DAY), INFUSION
     Route: 042
     Dates: start: 20240717, end: 20240720
  2. MEROPENEM [Suspect]
     Active Substance: MEROPENEM
     Dosage: 40 MILLIGRAM/KILOGRAM, Q8H, INFUSION, MEROPENEM AT AN INCREASED DOSE (120 MG/KG PER DAY)
     Route: 042
     Dates: start: 20240717, end: 20240720

REACTIONS (2)
  - Drug clearance decreased [None]
  - Liver injury [None]

NARRATIVE: CASE EVENT DATE: 20240701
